FAERS Safety Report 18226743 (Version 1)
Quarter: 2020Q3

REPORT INFORMATION
  Report Type: Spontaneous
  Country: US (occurrence: US)
  Receive Date: 20200903
  Receipt Date: 20200903
  Transmission Date: 20201103
  Serious: No
  Sender: FDA-Public Use
  Company Number: US-BAYER-2020-185643

PATIENT
  Age: 59 Year
  Sex: Female

DRUGS (5)
  1. CLIMARA [Suspect]
     Active Substance: ESTRADIOL
     Dosage: UNK
     Route: 062
     Dates: start: 202008
  2. LAMOTRIGINE. [Concomitant]
     Active Substance: LAMOTRIGINE
  3. CREAM 91 [Concomitant]
  4. ATORVASTATIN [Concomitant]
     Active Substance: ATORVASTATIN
  5. ABILIFY [Concomitant]
     Active Substance: ARIPIPRAZOLE

REACTIONS (2)
  - Wrong technique in product usage process [None]
  - Product adhesion issue [None]
